FAERS Safety Report 14675218 (Version 3)
Quarter: 2018Q2

REPORT INFORMATION
  Report Type: Spontaneous
  Country: JP (occurrence: JP)
  Receive Date: 20180323
  Receipt Date: 20180510
  Transmission Date: 20180711
  Serious: Yes (Other)
  Sender: FDA-Public Use
  Company Number: JP-BAYER-2018-050463

PATIENT
  Age: 66 Year
  Sex: Female
  Weight: 58.1 kg

DRUGS (1)
  1. NEXAVAR [Suspect]
     Active Substance: SORAFENIB
     Indication: THYROID CANCER METASTATIC
     Dosage: DAILY DOSE 800 MG
     Route: 048
     Dates: start: 20150401, end: 20180220

REACTIONS (6)
  - Cerebral infarction [Recovering/Resolving]
  - Deep vein thrombosis [Not Recovered/Not Resolved]
  - Cerebral haemorrhage [Recovering/Resolving]
  - Disseminated intravascular coagulation [None]
  - Post procedural oedema [None]
  - Muscle atrophy [None]

NARRATIVE: CASE EVENT DATE: 201802
